FAERS Safety Report 20421345 (Version 7)
Quarter: 2024Q1

REPORT INFORMATION
  Report Type: Report from Study
  Country: CL (occurrence: CL)
  Receive Date: 20220203
  Receipt Date: 20240131
  Transmission Date: 20240410
  Serious: Yes (Other)
  Sender: FDA-Public Use
  Company Number: CL-TAKEDA-CL202028848

PATIENT
  Age: 7 Year
  Sex: Male
  Weight: 29.932 kg

DRUGS (5)
  1. IDURSULFASE [Suspect]
     Active Substance: IDURSULFASE
     Indication: Mucopolysaccharidosis II
     Dosage: 0.5 MILLIGRAM/KILOGRAM, 1/WEEK
     Route: 042
     Dates: start: 20200829
  2. IDURSULFASE [Suspect]
     Active Substance: IDURSULFASE
     Indication: Enzyme supplementation
     Dosage: 0.5 MILLIGRAM/KILOGRAM, 1/WEEK
     Route: 042
  3. IDURSULFASE [Suspect]
     Active Substance: IDURSULFASE
     Dosage: 0.5 MILLIGRAM/KILOGRAM, 1/WEEK
     Route: 042
  4. IDURSULFASE [Suspect]
     Active Substance: IDURSULFASE
     Dosage: 0.5 MILLIGRAM/KILOGRAM, 1/WEEK
     Route: 042
  5. IDURSULFASE [Suspect]
     Active Substance: IDURSULFASE
     Dosage: 0.5 MILLIGRAM/KILOGRAM, 1/WEEK
     Route: 042

REACTIONS (15)
  - COVID-19 [Recovered/Resolved]
  - Catheter site pain [Recovered/Resolved]
  - Catheter site related reaction [Recovered/Resolved]
  - Administration site extravasation [Recovered/Resolved]
  - Catheter site swelling [Recovered/Resolved]
  - Needle issue [Recovered/Resolved]
  - Device infusion issue [Unknown]
  - Palpitations [Recovered/Resolved]
  - Nasal congestion [Unknown]
  - Pallor [Unknown]
  - Secretion discharge [Unknown]
  - Pyrexia [Recovering/Resolving]
  - Poor venous access [Recovering/Resolving]
  - Complication associated with device [Recovering/Resolving]
  - Incorrect dose administered [Unknown]

NARRATIVE: CASE EVENT DATE: 20200829
